FAERS Safety Report 6289053-6 (Version None)
Quarter: 2009Q3

REPORT INFORMATION
  Report Type: 
  Country: None (occurrence: None)
  Receive Date: 20090729
  Receipt Date: 20090720
  Transmission Date: 20100115
  Serious: Yes (Life-Threatening, Hospitalization)
  Sender: FDA-Public Use
  Company Number: FR-AMGEN-UK356735

PATIENT
  Sex: Female
  Weight: 44 kg

DRUGS (8)
  1. ARANESP [Suspect]
     Indication: MULTIPLE MYELOMA
     Route: 058
     Dates: start: 20080428, end: 20081101
  2. REVLIMID [Suspect]
     Indication: MULTIPLE MYELOMA
     Route: 048
     Dates: start: 20080407, end: 20090202
  3. MELPHALAN [Suspect]
     Route: 065
  4. DURAGESIC-100 [Concomitant]
     Route: 065
  5. DEXAMETHASONE [Concomitant]
     Indication: MULTIPLE MYELOMA
     Route: 048
     Dates: start: 20080407, end: 20081101
  6. ZOMETA [Concomitant]
     Indication: MULTIPLE MYELOMA
     Route: 042
     Dates: end: 20080601
  7. INFLUENZA VACCINE [Concomitant]
     Route: 058
     Dates: start: 20081001
  8. PREDNISONE [Concomitant]
     Route: 065

REACTIONS (3)
  - INFECTION [None]
  - MYELODYSPLASTIC SYNDROME [None]
  - NEUTROPENIA [None]
